FAERS Safety Report 17902935 (Version 1)
Quarter: 2020Q2

REPORT INFORMATION
  Report Type: Spontaneous
  Country: US (occurrence: US)
  Receive Date: 20200617
  Receipt Date: 20200617
  Transmission Date: 20200714
  Serious: No
  Sender: FDA-Public Use
  Company Number: US-LUPIN PHARMACEUTICALS INC.-2019-04027

PATIENT
  Sex: Female
  Weight: 58.05 kg

DRUGS (1)
  1. VANCOMYCIN HYDROCHLORIDE CAPSULES USP 250 MG [Suspect]
     Active Substance: VANCOMYCIN HYDROCHLORIDE
     Indication: PRODUCT USED FOR UNKNOWN INDICATION
     Dosage: 250 MILLIGRAM, QID
     Route: 048
     Dates: start: 20190613

REACTIONS (1)
  - Pruritus [Not Recovered/Not Resolved]
